FAERS Safety Report 6165769-7 (Version None)
Quarter: 2009Q2

REPORT INFORMATION
  Report Type: 
  Country: None (occurrence: None)
  Receive Date: 20090422
  Receipt Date: 20090408
  Transmission Date: 20091009
  Serious: Yes (Hospitalization, Other)
  Sender: FDA-Public Use
  Company Number: 2009S1006555

PATIENT
  Age: 2 Day
  Sex: Female
  Weight: 1.89 kg

DRUGS (1)
  1. FLUOXETINE [Suspect]
     Indication: DEPRESSION
     Dosage: 20 MG; ;TRANSPLACENTAL
     Route: 064

REACTIONS (6)
  - BRADYCARDIA NEONATAL [None]
  - DRUG WITHDRAWAL SYNDROME NEONATAL [None]
  - INFANTILE APNOEIC ATTACK [None]
  - JAUNDICE NEONATAL [None]
  - MATERNAL DRUGS AFFECTING FOETUS [None]
  - OXYGEN SATURATION DECREASED [None]
